FAERS Safety Report 4629039-8 (Version None)
Quarter: 2005Q2

REPORT INFORMATION
  Report Type: 
  Country: None (occurrence: None)
  Receive Date: 20050407
  Receipt Date: 20050330
  Transmission Date: 20051028
  Serious: Yes (Other)
  Sender: FDA-Public Use
  Company Number: PHNU2005DE01503

PATIENT

DRUGS (1)
  1. AREDIA [Suspect]

REACTIONS (1)
  - HAEMATURIA [None]
